FAERS Safety Report 5094144-1 (Version None)
Quarter: 2006Q3

REPORT INFORMATION
  Report Type: 
  Country: None (occurrence: None)
  Receive Date: 20060831
  Receipt Date: 20060821
  Transmission Date: 20061208
  Serious: Yes (Other)
  Sender: FDA-Public Use
  Company Number: DE-JNJFOC-20060804446

PATIENT
  Age: 5 Decade
  Sex: Female

DRUGS (1)
  1. TOPAMAX [Suspect]
     Indication: MIGRAINE PROPHYLAXIS
     Dosage: 2 X 0.5 TABLET PER DAY
     Route: 048

REACTIONS (5)
  - ANOREXIA [None]
  - DEPRESSIVE SYMPTOM [None]
  - RESTLESS LEGS SYNDROME [None]
  - RESTLESSNESS [None]
  - WEIGHT DECREASED [None]
